FAERS Safety Report 4495298-8 (Version None)
Quarter: 2004Q4

REPORT INFORMATION
  Report Type: 
  Country: None (occurrence: None)
  Receive Date: 20041108
  Receipt Date: 20040923
  Transmission Date: 20050328
  Serious: No
  Sender: FDA-Public Use
  Company Number: US-GLAXOSMITHKLINE-A0527132A

PATIENT
  Sex: Female

DRUGS (13)
  1. AVANDAMET [Suspect]
     Route: 048
  2. LIPITOR [Concomitant]
  3. POTASSIUM [Concomitant]
  4. ASPIRIN [Concomitant]
  5. ASPIRIN [Concomitant]
  6. LASIX [Concomitant]
  7. DIAZIDE [Concomitant]
  8. LOPRESSOR [Concomitant]
  9. ALLEGRA [Concomitant]
  10. ZESTRIL [Concomitant]
  11. XANAX [Concomitant]
  12. SYNTHROID [Concomitant]
  13. NIACIN [Concomitant]

REACTIONS (1)
  - NAUSEA [None]
